FAERS Safety Report 11026530 (Version 8)
Quarter: 2015Q3

REPORT INFORMATION
  Report Type: Spontaneous
  Country: DK (occurrence: IT)
  Receive Date: 20150414
  Receipt Date: 20150708
  Transmission Date: 20151125
  Serious: Yes (Hospitalization)
  Sender: FDA-Public Use
  Company Number: IT-FRI-1000075858

PATIENT
  Age: 41 Year
  Sex: Male

DRUGS (4)
  1. STILNOX 10MG COMPRESSE RIV CON FILM-30 COMPRESSE [Suspect]
     Active Substance: ZOLPIDEM TARTRATE
     Indication: INTENTIONAL SELF-INJURY
     Route: 048
     Dates: start: 20150308, end: 20150308
  2. STILNOX 10MG COMPRESSE RIV CON FILM-30 COMPRESSE [Suspect]
     Active Substance: ZOLPIDEM TARTRATE
     Indication: SLEEP DISORDER
     Route: 065
  3. ESCITALOPRAM [Suspect]
     Active Substance: ESCITALOPRAM OXALATE
     Dosage: 10 GTT
     Route: 065
  4. ESCITALOPRAM [Suspect]
     Active Substance: ESCITALOPRAM OXALATE
     Indication: INTENTIONAL SELF-INJURY
     Dosage: OVERDOSE: 100 MG
     Route: 048
     Dates: start: 20150308, end: 20150308

REACTIONS (3)
  - Overdose [Recovered/Resolved]
  - Intentional self-injury [Recovered/Resolved]
  - Sopor [Recovered/Resolved]

NARRATIVE: CASE EVENT DATE: 20150308
